FAERS Safety Report 5376545-7 (Version None)
Quarter: 2007Q3

REPORT INFORMATION
  Report Type: 
  Country: None (occurrence: None)
  Receive Date: 20070702
  Receipt Date: 20070622
  Transmission Date: 20080115
  Serious: Yes (Death)
  Sender: FDA-Public Use
  Company Number: RO-ABBOTT-07P-135-0372485-00

PATIENT
  Age: 49 Year
  Sex: Female
  Weight: 46 kg

DRUGS (2)
  1. KALETRA [Suspect]
     Indication: HIV INFECTION
     Dosage: 798/198 MG
     Route: 048
     Dates: start: 20070313, end: 20070427
  2. LAMIVUDINE + ZIDOVUDINE [Concomitant]
     Indication: HIV INFECTION
     Route: 048
     Dates: start: 20070313, end: 20070427

REACTIONS (3)
  - ANOREXIA [None]
  - DIARRHOEA [None]
  - HYPOTENSION [None]
